FAERS Safety Report 18991303 (Version 2)
Quarter: 2021Q2

REPORT INFORMATION
  Report Type: Report from Study
  Country: DE (occurrence: DE)
  Receive Date: 20210310
  Receipt Date: 20210415
  Transmission Date: 20210717
  Serious: Yes (Hospitalization, Other)
  Sender: FDA-Public Use
  Company Number: DE-ROCHE-2772395

PATIENT
  Age: 60 Year
  Sex: Male
  Weight: 98 kg

DRUGS (4)
  1. COBIMETINIB. [Suspect]
     Active Substance: COBIMETINIB
     Dosage: ON 12/MAR/2021, HE RECEIVED MOST RECENT DOSE OF COBIMETINIB 20 MG
     Route: 048
     Dates: start: 20210304
  2. COBIMETINIB. [Suspect]
     Active Substance: COBIMETINIB
     Indication: METASTATIC MALIGNANT MELANOMA
     Dosage: ON 08/FEB/2021, HE RECEIVED THE MOST RECENT DOSE OF COBIMETINIB PRIOR TO SAE.
     Route: 048
     Dates: start: 20210204
  3. VEMURAFENIB. [Suspect]
     Active Substance: VEMURAFENIB
     Indication: METASTATIC MALIGNANT MELANOMA
     Dosage: ON 08/FEB/2021, HE RECEIVED THE MOST RECENT DOSE OF VEMURAFENIB PRIOR TO SAE.
     Route: 048
     Dates: start: 20210204
  4. VEMURAFENIB. [Suspect]
     Active Substance: VEMURAFENIB
     Dosage: ON 12/MAR/2021, HE RECEIVED MOST RECENT DOSE OF VEMURAFENIB 480 MG
     Route: 048
     Dates: start: 20210304

REACTIONS (3)
  - Detachment of retinal pigment epithelium [Unknown]
  - Urinary tract infection [Recovered/Resolved]
  - Pyrexia [Recovered/Resolved]

NARRATIVE: CASE EVENT DATE: 20210209
